FAERS Safety Report 11742074 (Version 4)
Quarter: 2016Q1

REPORT INFORMATION
  Report Type: Spontaneous
  Country: US (occurrence: US)
  Receive Date: 20151116
  Receipt Date: 20160112
  Transmission Date: 20160525
  Serious: Yes (Other)
  Sender: FDA-Public Use
  Company Number: US-PFIZER INC-2015343648

PATIENT
  Age: 59 Year
  Sex: Female
  Weight: 45 kg

DRUGS (2)
  1. KEPPRA [Suspect]
     Active Substance: LEVETIRACETAM
     Indication: SEIZURE
     Dosage: 500 MG, 2X/DAY
  2. VFEND [Suspect]
     Active Substance: VORICONAZOLE
     Indication: FUNGAL ABSCESS CENTRAL NERVOUS SYSTEM
     Dosage: 450 MG, 2X/DAY
     Route: 048
     Dates: start: 20150827

REACTIONS (6)
  - Product use issue [Unknown]
  - Memory impairment [Unknown]
  - Visual impairment [Unknown]
  - Pain [Unknown]
  - Hallucination [Unknown]
  - Dysstasia [Unknown]
